FAERS Safety Report 9295849 (Version 2)
Quarter: 2013Q2

REPORT INFORMATION
  Report Type: Report from Study
  Country: GB (occurrence: GB)
  Receive Date: 20130517
  Receipt Date: 20130606
  Transmission Date: 20140414
  Serious: Yes (Hospitalization)
  Sender: FDA-Public Use
  Company Number: GB-PFIZER INC-2013146192

PATIENT
  Age: 80 Year
  Sex: Female

DRUGS (4)
  1. IBUPROFEN [Suspect]
     Indication: OSTEOARTHRITIS
     Dosage: 400 MG, 2X/DAY
     Route: 048
     Dates: start: 20090128
  2. OXYBUTYNIN [Concomitant]
     Dosage: 2 MG, 1X/DAY
     Dates: start: 20000727
  3. LAXIDO [Concomitant]
     Dosage: UNK
     Dates: start: 20111116
  4. QUININE SULPHATE [Concomitant]
     Dosage: 300 MG, 1X/DAY
     Dates: start: 19970623

REACTIONS (1)
  - Cholecystitis acute [Recovered/Resolved]
